FAERS Safety Report 7583927-1 (Version None)
Quarter: 2011Q2

REPORT INFORMATION
  Report Type: 
  Country: None (occurrence: None)
  Receive Date: 20110630
  Receipt Date: 20110617
  Transmission Date: 20111010
  Serious: Yes (Life-Threatening, Hospitalization)
  Sender: FDA-Public Use
  Company Number: GB-BAYER-2011-052364

PATIENT
  Age: 31 Year
  Sex: Female
  Weight: 65 kg

DRUGS (5)
  1. MIRENA [Suspect]
     Indication: CONTRACEPTION
     Dosage: 20 MCG/24HR, CONT
     Dates: start: 20050101
  2. MIRENA [Suspect]
     Indication: MENORRHAGIA
  3. DOCUSATE [Concomitant]
  4. ACETAMINOPHEN [Concomitant]
  5. DICLOFENAC SODIUM [Concomitant]

REACTIONS (4)
  - HAEMORRHAGIC OVARIAN CYST [None]
  - PELVIC MASS [None]
  - INFLAMMATION [None]
  - ABDOMINAL PAIN [None]
